FAERS Safety Report 9152825 (Version 2)
Quarter: 2013Q1

REPORT INFORMATION
  Report Type: Spontaneous
  Country: DE (occurrence: DE)
  Receive Date: 20130309
  Receipt Date: 20130316
  Transmission Date: 20140127
  Serious: Yes (Life-Threatening, Hospitalization, Other)
  Sender: FDA-Public Use
  Company Number: DE-US-EMD SERONO, INC.-7196921

PATIENT
  Age: 41 None
  Sex: Male
  Weight: 95 kg

DRUGS (3)
  1. REBIF [Suspect]
     Indication: MULTIPLE SCLEROSIS
     Route: 058
     Dates: start: 200904, end: 20130220
  2. REBIF [Suspect]
     Route: 058
     Dates: start: 20130306
  3. PARACETAMOL [Concomitant]
     Indication: PRODUCT USED FOR UNKNOWN INDICATION

REACTIONS (4)
  - Hypertension [Recovered/Resolved]
  - Haemorrhage intracranial [Not Recovered/Not Resolved]
  - Cerebrovascular accident [Unknown]
  - Nephropathy [Unknown]
